FAERS Safety Report 5678797-2 (Version None)
Quarter: 2008Q1

REPORT INFORMATION
  Report Type: 
  Country: None (occurrence: None)
  Receive Date: 20080321
  Receipt Date: 20080313
  Transmission Date: 20080703
  Serious: No
  Sender: FDA-Public Use
  Company Number: CERZ-1000041

PATIENT
  Age: 67 Year
  Sex: Male
  Weight: 78.8 kg

DRUGS (2)
  1. CEREZYME [Suspect]
     Indication: GAUCHER'S DISEASE
     Dosage: 30.U/KG, 2X/W, INTRAVENOUS
     Route: 042
     Dates: start: 20060415, end: 20071206
  2. SOLSIX () [Suspect]
     Indication: ADENOCARCINOMA

REACTIONS (3)
  - ADENOCARCINOMA [None]
  - METASTASES TO PERITONEUM [None]
  - METASTATIC NEOPLASM [None]
